FAERS Safety Report 8863103 (Version 1)
Quarter: 2012Q4

REPORT INFORMATION
  Report Type: 
  Country: NO (occurrence: NO)
  Receive Date: 20121026
  Receipt Date: 20121026
  Transmission Date: 20130627
  Serious: Yes (Disabling)
  Sender: FDA-Public Use
  Company Number: NO-GE HEALTHCARE MEDICAL DIAGNOSTICS-OMPQ-NO-1210S-1120

PATIENT
  Age: 76 None
  Sex: Male

DRUGS (6)
  1. OMNIPAQUE [Suspect]
     Indication: PROSTATE CANCER
     Route: 042
     Dates: start: 20080610, end: 20080610
  2. OMNISCAN [Suspect]
     Indication: PRODUCT USED FOR UNKNOWN INDICATION
     Dosage: dose not reported
     Route: 065
     Dates: start: 20080612, end: 20080612
  3. RENITEC [Concomitant]
  4. SIMVASTATIN [Concomitant]
  5. ASASANTIN [Concomitant]
  6. ZOLADEX [Concomitant]

REACTIONS (3)
  - VIIth nerve paralysis [Not Recovered/Not Resolved]
  - Pruritus [Recovered/Resolved]
  - Urticaria [Recovered/Resolved]
